FAERS Safety Report 9750221 (Version 1)
Quarter: 2013Q4

REPORT INFORMATION
  Report Type: Spontaneous
  Country: FR (occurrence: FR)
  Receive Date: 20131212
  Receipt Date: 20131212
  Transmission Date: 20140711
  Serious: Yes (Hospitalization)
  Sender: FDA-Public Use
  Company Number: FR-GLAXOSMITHKLINE-B0950795A

PATIENT
  Age: 45 Year
  Sex: Female

DRUGS (10)
  1. ZOPHREN [Suspect]
     Indication: PROCEDURAL VOMITING
     Dosage: 8MG TWICE PER DAY
     Route: 048
     Dates: start: 20130625, end: 20130823
  2. BACTRIM FORTE [Suspect]
     Dosage: 2TAB TWICE PER DAY
     Route: 048
     Dates: start: 20130815, end: 20130824
  3. DAFALGAN [Suspect]
     Indication: PAIN
     Dosage: 1G THREE TIMES PER DAY
     Route: 048
     Dates: start: 20130625, end: 20130823
  4. INEXIUM [Suspect]
     Dosage: 20MG PER DAY
     Route: 048
     Dates: start: 20130625, end: 20130823
  5. PRIMPERAN [Suspect]
     Indication: VOMITING
     Dosage: 10MG THREE TIMES PER DAY
     Route: 048
     Dates: start: 20130822, end: 20130824
  6. DOMPERIDONE [Suspect]
     Indication: VOMITING
     Dosage: 10MG THREE TIMES PER DAY
     Route: 048
     Dates: start: 20130823, end: 20130824
  7. CIFLOX [Concomitant]
     Dosage: 750MG TWICE PER DAY
     Route: 048
     Dates: start: 20130806, end: 20130823
  8. ATARAX [Concomitant]
     Indication: INSOMNIA
     Dosage: 50MG PER DAY
     Route: 048
     Dates: start: 20130720, end: 20130826
  9. CLAFORAN [Concomitant]
     Dates: start: 20130721
  10. TAZOCILLINE [Concomitant]
     Route: 042
     Dates: start: 20130805, end: 20130814

REACTIONS (4)
  - Toxic epidermal necrolysis [Recovered/Resolved]
  - Malaise [Recovered/Resolved]
  - Vomiting [Recovered/Resolved]
  - Cholestasis [Recovered/Resolved]
